FAERS Safety Report 9374405 (Version 1)
Quarter: 2013Q2

REPORT INFORMATION
  Report Type: Spontaneous
  Country: BR (occurrence: BR)
  Receive Date: 20130628
  Receipt Date: 20130628
  Transmission Date: 20140414
  Serious: Yes (Hospitalization, Other)
  Sender: FDA-Public Use
  Company Number: PHHY2013BR041737

PATIENT
  Sex: Female

DRUGS (4)
  1. RITALINA [Suspect]
     Indication: NARCOLEPSY
     Dosage: 10 MG, UNK
  2. RITALINA [Suspect]
     Dosage: 10 UNK, UNK
  3. RITALINA [Suspect]
     Dosage: 10 UNK, DAILY
  4. RITALINA [Suspect]
     Dosage: 30 MG, DAILY (2 OR 3 TABLETS OF 10 MG DAILY)
     Route: 048

REACTIONS (5)
  - Drug withdrawal syndrome [Recovered/Resolved]
  - Myocardial infarction [Recovered/Resolved]
  - Somnolence [Not Recovered/Not Resolved]
  - Narcolepsy [Unknown]
  - Nervousness [Recovered/Resolved]
